FAERS Safety Report 20307368 (Version 3)
Quarter: 2023Q1

REPORT INFORMATION
  Report Type: Spontaneous
  Country: US (occurrence: None)
  Receive Date: 20220107
  Receipt Date: 20230114
  Transmission Date: 20230418
  Serious: No
  Sender: FDA-Public Use
  Company Number: US-ROCHE-2989200

PATIENT
  Age: 24 Year
  Sex: Female
  Weight: 61.2 kg

DRUGS (3)
  1. ACTEMRA [Suspect]
     Active Substance: TOCILIZUMAB
     Indication: COVID-19
     Dosage: STRENGTH- 80MG/4ML MG/ML
     Route: 042
     Dates: start: 20211223, end: 20211223
  2. METOCLOPRAMIDE [Concomitant]
     Active Substance: METOCLOPRAMIDE
     Dates: start: 20210928
  3. SOTROVIMAB [Concomitant]
     Active Substance: SOTROVIMAB
     Indication: COVID-19

REACTIONS (4)
  - Off label use [Unknown]
  - Maternal exposure during pregnancy [Unknown]
  - Product prescribing error [Unknown]
  - No adverse event [Unknown]
